FAERS Safety Report 4781965-5 (Version None)
Quarter: 2005Q3

REPORT INFORMATION
  Report Type: 
  Country: None (occurrence: None)
  Receive Date: 20050927
  Receipt Date: 20050914
  Transmission Date: 20060218
  Serious: Yes (Death)
  Sender: FDA-Public Use
  Company Number: 2005129278

PATIENT
  Age: 54 Year

DRUGS (4)
  1. ALPRAZOLAM [Suspect]
     Indication: ILL-DEFINED DISORDER
  2. TRAZODONE HCL [Suspect]
     Indication: ILL-DEFINED DISORDER
  3. ETHANOL (ETHANOL) [Suspect]
     Indication: ILL-DEFINED DISORDER
  4. ALL OTHER THERAPEUTIC PRODUCTS (ALL OTHER THERAPEUTIC PRODUCTS) [Suspect]
     Indication: ILL-DEFINED DISORDER

REACTIONS (3)
  - CARDIO-RESPIRATORY ARREST [None]
  - INTENTIONAL MISUSE [None]
  - MULTIPLE DRUG OVERDOSE [None]
